FAERS Safety Report 18483606 (Version 1)
Quarter: 2020Q4

REPORT INFORMATION
  Report Type: Spontaneous
  Country: US (occurrence: US)
  Receive Date: 20201109
  Receipt Date: 20201109
  Transmission Date: 20210114
  Serious: No
  Sender: FDA-Public Use
  Company Number: US-ROCHE-2567331

PATIENT
  Sex: Female
  Weight: 54.03 kg

DRUGS (7)
  1. KALYDECO [Concomitant]
     Active Substance: IVACAFTOR
     Route: 048
     Dates: start: 20200311
  2. ALBUTEROL. [Concomitant]
     Active Substance: ALBUTEROL
     Route: 048
     Dates: start: 20200311
  3. TOBI [Concomitant]
     Active Substance: TOBRAMYCIN
     Dates: start: 20200311
  4. PULMOZYME [Suspect]
     Active Substance: DORNASE ALFA
     Indication: BACTERIAL INFECTION
     Dosage: 1 MG/ML 2.5ML
     Route: 055
     Dates: start: 20200313
  5. VIT D [Concomitant]
     Active Substance: VITAMIN D NOS
     Route: 048
     Dates: start: 20200311
  6. AZITHROMYCIN ANHYDROUS. [Concomitant]
     Active Substance: AZITHROMYCIN ANHYDROUS
     Route: 048
     Dates: start: 20200311
  7. SODIUM ACETATE. [Concomitant]
     Active Substance: SODIUM ACETATE
     Dates: start: 20200311

REACTIONS (4)
  - Weight increased [Unknown]
  - Influenza [Recovered/Resolved]
  - Intentional product use issue [Unknown]
  - Off label use [Unknown]
